FAERS Safety Report 16172488 (Version 1)
Quarter: 2019Q2

REPORT INFORMATION
  Report Type: Spontaneous
  Country: US (occurrence: US)
  Receive Date: 20190409
  Receipt Date: 20190409
  Transmission Date: 20190711
  Serious: No
  Sender: FDA-Public Use
  Company Number: US-GLAXOSMITHKLINE-US2019061936

PATIENT
  Sex: Female

DRUGS (1)
  1. FLONASE SENSIMIST ALLERGY RELIEF [Suspect]
     Active Substance: FLUTICASONE FUROATE
     Dosage: UNK UNK, QD (ONE SPAY IN EACH NOSTRIL ONCE A DAY)
     Dates: start: 201811

REACTIONS (2)
  - Incorrect dose administered [Unknown]
  - Epistaxis [Unknown]

NARRATIVE: CASE EVENT DATE: 201903
